FAERS Safety Report 5117113-1 (Version None)
Quarter: 2006Q3

REPORT INFORMATION
  Report Type: 
  Country: None (occurrence: None)
  Receive Date: 20060926
  Receipt Date: 20060914
  Transmission Date: 20061208
  Serious: Yes (Other)
  Sender: FDA-Public Use
  Company Number: US200607004868

PATIENT
  Age: 70 Year
  Sex: Male

DRUGS (5)
  1. ALIMTA [Suspect]
     Indication: MESOTHELIOMA MALIGNANT
     Dosage: 925 MG, INTRAVENOUS
     Route: 042
     Dates: start: 20060425
  2. CISPLATIN [Concomitant]
  3. CARBOPLATIN [Concomitant]
  4. CYANOCOBALAMIN [Concomitant]
  5. FOLIC ACID [Concomitant]

REACTIONS (1)
  - HAEMOLYTIC ANAEMIA [None]
